FAERS Safety Report 6266678-5 (Version None)
Quarter: 2009Q3

REPORT INFORMATION
  Report Type: 
  Country: None (occurrence: None)
  Receive Date: 20090710
  Receipt Date: 20090619
  Transmission Date: 20100115
  Serious: Yes (Hospitalization)
  Sender: FDA-Public Use
  Company Number: JPI-P-007678

PATIENT
  Age: 60 Year
  Sex: Female
  Weight: 113.3993 kg

DRUGS (9)
  1. XYREM [Suspect]
     Indication: NARCOLEPSY
     Dosage: 4.5 GM (2.25 GM, 2 IN 1 D), ORAL
     Route: 048
     Dates: start: 20090601
  2. ASPIRIN (PILL) [Concomitant]
  3. CARDIZEM LA (PILL) [Concomitant]
  4. CELECOXIB (PILL) [Concomitant]
  5. DARVOCET (PILL) [Concomitant]
  6. DIAZEPAM (PILL) [Concomitant]
  7. METOPROLOL (PILL) [Concomitant]
  8. QUETIAPINE (PILL) [Concomitant]
  9. ALLEGRA D (PILL) [Concomitant]

REACTIONS (1)
  - PAIN [None]
